FAERS Safety Report 24986458 (Version 1)
Quarter: 2025Q1

REPORT INFORMATION
  Report Type: Spontaneous
  Country: CH (occurrence: CH)
  Receive Date: 20250219
  Receipt Date: 20250219
  Transmission Date: 20250408
  Serious: Yes (Hospitalization)
  Sender: PFIZER
  Company Number: None

PATIENT
  Age: 80 Year
  Sex: Female

DRUGS (4)
  1. DILTIAZEM HYDROCHLORIDE [Interacting]
     Active Substance: DILTIAZEM HYDROCHLORIDE
     Dates: start: 20250121
  2. FENTANYL [Interacting]
     Active Substance: FENTANYL
     Route: 042
     Dates: end: 20250115
  3. FENTANYL [Interacting]
     Active Substance: FENTANYL
     Route: 062
     Dates: start: 20250116, end: 20250118
  4. FENTANYL [Interacting]
     Active Substance: FENTANYL
     Route: 062
     Dates: start: 20250119, end: 20250122

REACTIONS (5)
  - Drug interaction [Unknown]
  - Overdose [Unknown]
  - Irregular breathing [Not Recovered/Not Resolved]
  - Miosis [Recovering/Resolving]
  - Consciousness fluctuating [Recovering/Resolving]

NARRATIVE: CASE EVENT DATE: 20250101
